FAERS Safety Report 14772973 (Version 3)
Quarter: 2018Q3

REPORT INFORMATION
  Report Type: Report from Study
  Country: US (occurrence: US)
  Receive Date: 20180418
  Receipt Date: 20180910
  Transmission Date: 20181010
  Serious: Yes (Disabling, Other)
  Sender: FDA-Public Use
  Company Number: US-ROCHE-2107427

PATIENT
  Age: 53 Year
  Sex: Female
  Weight: 62.2 kg

DRUGS (3)
  1. OCREVUS [Suspect]
     Active Substance: OCRELIZUMAB
     Route: 042
     Dates: start: 20180813
  2. OCREVUS [Suspect]
     Active Substance: OCRELIZUMAB
     Indication: RELAPSING-REMITTING MULTIPLE SCLEROSIS
     Route: 042
     Dates: start: 201802
  3. OCREVUS [Suspect]
     Active Substance: OCRELIZUMAB
     Route: 042

REACTIONS (27)
  - Fatigue [Unknown]
  - Feeling abnormal [Unknown]
  - Arthralgia [Unknown]
  - Bone pain [Unknown]
  - Mood altered [Recovered/Resolved]
  - Pain [Not Recovered/Not Resolved]
  - Relapsing-remitting multiple sclerosis [Unknown]
  - Nuclear magnetic resonance imaging abnormal [Unknown]
  - Tremor [Not Recovered/Not Resolved]
  - Oral pruritus [Unknown]
  - Balance disorder [Unknown]
  - Hemiparesis [Not Recovered/Not Resolved]
  - Memory impairment [Unknown]
  - Pruritus [Unknown]
  - Bone disorder [Unknown]
  - Weight decreased [Unknown]
  - Back pain [Not Recovered/Not Resolved]
  - Electric shock [Unknown]
  - Pain in extremity [Unknown]
  - Hypoaesthesia [Unknown]
  - Depression [Unknown]
  - Influenza [Unknown]
  - Malaise [Unknown]
  - Urticaria [Unknown]
  - Crying [Recovered/Resolved]
  - Mental impairment [Unknown]
  - Paraesthesia [Unknown]

NARRATIVE: CASE EVENT DATE: 20180328
